FAERS Safety Report 7698695-2 (Version None)
Quarter: 2011Q3

REPORT INFORMATION
  Report Type: 
  Country: None (occurrence: None)
  Receive Date: 20110819
  Receipt Date: 20110804
  Transmission Date: 20111222
  Serious: Yes (Hospitalization)
  Sender: FDA-Public Use
  Company Number: GB-ARROW GEN-2011-12955

PATIENT
  Age: 15 Month
  Sex: Female

DRUGS (1)
  1. TACROLIMUS [Suspect]
     Indication: PROPHYLAXIS AGAINST TRANSPLANT REJECTION
     Dosage: UNK

REACTIONS (7)
  - HEPATIC FUNCTION ABNORMAL [None]
  - SEPSIS [None]
  - INCREASED VISCOSITY OF BRONCHIAL SECRETION [None]
  - RENAL FAILURE [None]
  - DRUG LEVEL INCREASED [None]
  - LUNG CONSOLIDATION [None]
  - PUPIL FIXED [None]
